FAERS Safety Report 5736659-6 (Version None)
Quarter: 2008Q2

REPORT INFORMATION
  Report Type: 
  Country: None (occurrence: None)
  Receive Date: 20080508
  Receipt Date: 20080423
  Transmission Date: 20081010
  Serious: Yes (Hospitalization)
  Sender: FDA-Public Use
  Company Number: VNL_00991_2008

PATIENT
  Sex: Female

DRUGS (10)
  1. APO-GO (APO-GO PFS 5 MG/ML SOLUTION FOR INFUSION IN PRE-FILLED SYRINGE [Suspect]
     Indication: PARKINSON'S DISEASE
     Dosage: (DF FOR 1 YEAR SUBCUTANEOUS)
     Route: 058
     Dates: start: 20070201, end: 20080201
  2. CO-BENELDOPA (CO-BENELDOPA) [Suspect]
     Indication: DRUG USE FOR UNKNOWN INDICATION
     Dosage: (1 DF QID 25/100 MG)
     Dates: start: 20061213
  3. MADOPAR CR (MADOPAR CR - CO-BENELDOPA) [Suspect]
     Indication: DRUG USE FOR UNKNOWN INDICATION
     Dosage: (1 DF BID [NOCTE] 25/100 MG)
     Dates: start: 20050926
  4. SIMVASTATIN [Concomitant]
  5. DOMPERIDONE [Concomitant]
  6. FLUOXETINE [Concomitant]
  7. LEVOTHYROXINE SODIUM [Concomitant]
  8. INDERAL LA [Concomitant]
  9. PRAMIPEXOLE DIHYDROCHLORIDE [Concomitant]
  10. FUROSEMIDE [Concomitant]

REACTIONS (6)
  - APLASTIC ANAEMIA [None]
  - COOMBS TEST POSITIVE [None]
  - FALL [None]
  - HAEMOLYTIC ANAEMIA [None]
  - MALAISE [None]
  - TREMOR [None]
